FAERS Safety Report 10098224 (Version 1)
Quarter: 2014Q2

REPORT INFORMATION
  Report Type: Spontaneous
  Country: US (occurrence: None)
  Receive Date: 20140422
  Receipt Date: 20140422
  Transmission Date: 20141212
  Serious: Yes (Hospitalization)
  Sender: FDA-Public Use
  Company Number: None

PATIENT
  Age: 70 Year
  Sex: Male
  Weight: 78.4 kg

DRUGS (2)
  1. QUETIAPINE [Suspect]
     Dosage: 200 MG, AM, PO?
     Route: 048
     Dates: end: 20140305
  2. QUETIAPINE [Suspect]
     Dosage: 50 MG, OTHER, PO
     Route: 048

REACTIONS (3)
  - Pneumonia aspiration [None]
  - Exposure via ingestion [None]
  - Unresponsive to stimuli [None]
